FAERS Safety Report 11624463 (Version 1)
Quarter: 2015Q4

REPORT INFORMATION
  Report Type: Spontaneous
  Country: US (occurrence: US)
  Receive Date: 20151013
  Receipt Date: 20151013
  Transmission Date: 20160304
  Serious: Yes (Hospitalization, Other)
  Sender: FDA-Public Use
  Company Number: US-SHIRE-US201512323

PATIENT
  Age: 66 Year
  Sex: Female
  Weight: 60.77 kg

DRUGS (21)
  1. B12                                /00056201/ [Concomitant]
     Indication: PERNICIOUS ANAEMIA
     Dosage: UNK, OTHER (2X/MONTH)
     Route: 065
  2. PROTONIX                           /00661201/ [Concomitant]
     Active Substance: OMEPRAZOLE
     Indication: GASTROOESOPHAGEAL REFLUX DISEASE
     Dosage: 40 MG, 1X/DAY:QD
     Route: 048
  3. NORCO [Concomitant]
     Active Substance: ACETAMINOPHEN\HYDROCODONE BITARTRATE
     Indication: RADICULITIS BRACHIAL
  4. NORCO [Concomitant]
     Active Substance: ACETAMINOPHEN\HYDROCODONE BITARTRATE
     Indication: PAIN
     Dosage: 5/325 MG, AS REQ^D (2X/DAY)
     Route: 048
  5. FOLPLEX [Concomitant]
     Active Substance: CHOLECALCIFEROL\CYANOCOBALAMIN CO-57\FOLIC ACID\PYRIDOXINE HYDROCHLORIDE
     Indication: VITAMIN SUPPLEMENTATION
     Dosage: 1 DF, 1X/DAY:QD
     Route: 048
  6. PROLIA [Concomitant]
     Active Substance: DENOSUMAB
     Indication: OSTEOPOROSIS
     Dosage: 60 MG, OTHER (2X/YEAR)
     Route: 058
     Dates: start: 2014
  7. VALIUM [Concomitant]
     Active Substance: DIAZEPAM
     Indication: GASTROINTESTINAL MOTILITY DISORDER
     Dosage: 10 MG, AS REQ^D (2X/DAY)
     Route: 048
  8. NORCO [Concomitant]
     Active Substance: ACETAMINOPHEN\HYDROCODONE BITARTRATE
     Indication: THORACIC OUTLET SYNDROME
  9. CALCIUM MAGNESIUM + ZINC           /01320801/ [Concomitant]
     Indication: PRODUCT USED FOR UNKNOWN INDICATION
     Dosage: UNK, UNKNOWN
     Route: 065
  10. DULCOLAX (BISACODYL) [Concomitant]
     Active Substance: BISACODYL
     Indication: GASTROINTESTINAL MOTILITY DISORDER
     Dosage: UNK, AS REQ^D
     Route: 048
  11. VYVANSE [Suspect]
     Active Substance: LISDEXAMFETAMINE DIMESYLATE
     Indication: FIBROMYALGIA
     Dosage: 20 MG, 1X/DAY:QD
     Route: 048
     Dates: start: 2013, end: 2014
  12. PHENERGAN [Concomitant]
     Active Substance: PROMETHAZINE HYDROCHLORIDE
     Indication: IMPAIRED GASTRIC EMPTYING
     Dosage: 25 MG, AS REQ^D (2X/DAY)
     Route: 048
  13. ERY-TAB [Concomitant]
     Active Substance: ERYTHROMYCIN
     Indication: IMPAIRED GASTRIC EMPTYING
     Dosage: 250 MG, 4X/DAY:QID
     Route: 048
  14. COUMADIN [Concomitant]
     Active Substance: WARFARIN SODIUM
     Indication: PULMONARY EMBOLISM
     Dosage: 2 MG, OTHER (TWO 2 MG TABS MONDAY-FRIDAY + THREE 2 MG TABS TUES, WED, THURS, SAT, SUN)
     Route: 048
     Dates: start: 2007
  15. NORCO [Concomitant]
     Active Substance: ACETAMINOPHEN\HYDROCODONE BITARTRATE
     Indication: COMPLEX REGIONAL PAIN SYNDROME
  16. VITAMIN D3 [Concomitant]
     Active Substance: CHOLECALCIFEROL
     Indication: PRODUCT USED FOR UNKNOWN INDICATION
     Dosage: 2000 IU, 1X/DAY:QD
     Route: 048
  17. MIRALAX [Concomitant]
     Active Substance: POLYETHYLENE GLYCOL 3350
     Indication: GASTROINTESTINAL MOTILITY DISORDER
     Dosage: UNK, AS REQ^D
     Route: 048
  18. PRAVASTATIN [Concomitant]
     Active Substance: PRAVASTATIN\PRAVASTATIN SODIUM
     Indication: BLOOD CHOLESTEROL INCREASED
     Dosage: 20 MG, 1X/DAY:QD
     Route: 048
  19. VYVANSE [Suspect]
     Active Substance: LISDEXAMFETAMINE DIMESYLATE
     Dosage: 30 MG, 1X/DAY:QD
     Route: 048
     Dates: start: 2014
  20. COLACE [Concomitant]
     Active Substance: DOCUSATE SODIUM
     Indication: GASTROINTESTINAL MOTILITY DISORDER
     Dosage: 100 MG, 4X/DAY:QID
     Route: 048
  21. VENOFER [Concomitant]
     Active Substance: IRON SUCROSE
     Indication: ANAEMIA
     Dosage: UNK IU, 1X/2WKS
     Route: 042
     Dates: start: 201402, end: 201403

REACTIONS (14)
  - Radiculitis brachial [Not Recovered/Not Resolved]
  - Pain [Recovered/Resolved]
  - Hypoaesthesia [Not Recovered/Not Resolved]
  - Complex regional pain syndrome [Not Recovered/Not Resolved]
  - Thoracic outlet syndrome [Not Recovered/Not Resolved]
  - Loss of consciousness [Recovered/Resolved]
  - Paraesthesia [Not Recovered/Not Resolved]
  - Nerve injury [Not Recovered/Not Resolved]
  - Cardiovascular disorder [Not Recovered/Not Resolved]
  - Therapeutic response unexpected [Not Recovered/Not Resolved]
  - Nonspecific reaction [Unknown]
  - Sleep disorder [Not Recovered/Not Resolved]
  - Intervertebral disc protrusion [Recovered/Resolved with Sequelae]
  - Product use issue [Not Recovered/Not Resolved]

NARRATIVE: CASE EVENT DATE: 2013
